FAERS Safety Report 22590017 (Version 3)
Quarter: 2024Q3

REPORT INFORMATION
  Report Type: Report from Study
  Country: KR (occurrence: KR)
  Receive Date: 20230612
  Receipt Date: 20240830
  Transmission Date: 20241016
  Serious: Yes (Hospitalization)
  Sender: JOHNSON AND JOHNSON
  Company Number: KR-JNJFOC-20230601936

PATIENT
  Age: 80 Year
  Sex: Female
  Weight: 54 kg

DRUGS (20)
  1. AMIVANTAMAB [Suspect]
     Active Substance: AMIVANTAMAB
     Indication: Non-small cell lung cancer
     Route: 042
     Dates: start: 20230509, end: 20230509
  2. AMIVANTAMAB [Suspect]
     Active Substance: AMIVANTAMAB
     Route: 042
     Dates: start: 20230516, end: 20230516
  3. AMIVANTAMAB [Suspect]
     Active Substance: AMIVANTAMAB
     Route: 042
     Dates: start: 20230523, end: 20230523
  4. SYNATURA [Concomitant]
     Indication: Prophylaxis
     Route: 065
     Dates: start: 20220701
  5. CODEINE PHOSPHATE [Concomitant]
     Active Substance: CODEINE PHOSPHATE
     Indication: Prophylaxis
     Route: 065
     Dates: start: 20230109
  6. BARACROSS [Concomitant]
     Indication: Prophylaxis
     Route: 048
     Dates: start: 20220701
  7. NEXIUM [Concomitant]
     Active Substance: ESOMEPRAZOLE MAGNESIUM
     Indication: Prophylaxis
     Route: 065
     Dates: start: 20210709
  8. LOTAR [AMLODIPINE BESILATE;LOSARTAN POTASSIUM] [Concomitant]
     Route: 065
     Dates: start: 20230131
  9. ATORVASTATIN [Concomitant]
     Active Substance: ATORVASTATIN
     Route: 065
     Dates: start: 20211001
  10. GEMIGLIPTIN\METFORMIN [Concomitant]
     Active Substance: GEMIGLIPTIN\METFORMIN
     Route: 065
     Dates: start: 20230303
  11. ERDOSTEINE [Concomitant]
     Active Substance: ERDOSTEINE
     Indication: Prophylaxis
     Route: 065
     Dates: start: 20230502
  12. AMINO ACIDS\DEXTROSE\ELECTROLYTES NOS\SOYBEAN OIL\VITAMINS [Concomitant]
     Active Substance: AMINO ACIDS\DEXTROSE\ELECTROLYTES NOS\SOYBEAN OIL\VITAMINS
     Indication: Product used for unknown indication
     Route: 065
     Dates: start: 20230509, end: 20230509
  13. AMINO ACIDS\DEXTROSE\ELECTROLYTES NOS\SOYBEAN OIL\VITAMINS [Concomitant]
     Active Substance: AMINO ACIDS\DEXTROSE\ELECTROLYTES NOS\SOYBEAN OIL\VITAMINS
     Route: 065
     Dates: start: 20230511, end: 20230511
  14. KETOROLAC [Concomitant]
     Active Substance: KETOROLAC TROMETHAMINE
     Indication: Adverse event
     Route: 065
     Dates: start: 20230509, end: 20230509
  15. KETOROLAC [Concomitant]
     Active Substance: KETOROLAC TROMETHAMINE
     Indication: Premedication
     Route: 065
     Dates: start: 20230523, end: 20230523
  16. HUMULIN R [Concomitant]
     Active Substance: INSULIN HUMAN
     Indication: Product used for unknown indication
     Dates: start: 20230510, end: 20230510
  17. FUROSEMIDE [Concomitant]
     Active Substance: FUROSEMIDE
     Indication: Prophylaxis
     Route: 065
     Dates: start: 20230511, end: 20230516
  18. FUROSEMIDE [Concomitant]
     Active Substance: FUROSEMIDE
     Route: 065
     Dates: start: 20230516, end: 20230516
  19. DIABEX [Concomitant]
     Active Substance: METFORMIN HYDROCHLORIDE
     Indication: Product used for unknown indication
     Route: 065
     Dates: start: 20230513, end: 20230513
  20. MAXIGESIC [DICLOFENAC SODIUM;PARACETAMOL] [Concomitant]
     Indication: Adverse event
     Dosage: 1 VIAL
     Route: 065
     Dates: start: 20230509, end: 20230509

REACTIONS (1)
  - Tachycardia [Recovered/Resolved]

NARRATIVE: CASE EVENT DATE: 20230509
